FAERS Safety Report 15190794 (Version 1)
Quarter: 2018Q3

REPORT INFORMATION
  Report Type: Spontaneous
  Country: US (occurrence: US)
  Receive Date: 20180724
  Receipt Date: 20180724
  Transmission Date: 20181010
  Serious: No
  Sender: FDA-Public Use
  Company Number: US-MATRIXX INITIATIVES, INC.-2052664

PATIENT
  Sex: Female

DRUGS (1)
  1. ZICAM COLD REMEDY MEDICATED FRUIT DROPS [Suspect]
     Active Substance: HOMEOPATHICS
     Route: 048

REACTIONS (3)
  - Ageusia [None]
  - Swollen tongue [None]
  - Glossodynia [None]
